FAERS Safety Report 24692774 (Version 1)
Quarter: 2024Q4

REPORT INFORMATION
  Report Type: Spontaneous
  Country: TW (occurrence: TW)
  Receive Date: 20241203
  Receipt Date: 20241203
  Transmission Date: 20250115
  Serious: Yes (Life-Threatening, Hospitalization, Other)
  Sender: MEITHEAL PHARMACEUTICALS
  Company Number: TW-MEITHEAL-2024MPLIT00399

PATIENT
  Age: 52 Year
  Sex: Female

DRUGS (12)
  1. LEUCOVORIN CALCIUM [Suspect]
     Active Substance: LEUCOVORIN CALCIUM
     Indication: Colorectal cancer
     Dosage: 12 CYCLES
     Route: 065
  2. LEUCOVORIN CALCIUM [Suspect]
     Active Substance: LEUCOVORIN CALCIUM
     Dosage: 6 CYCLES
     Route: 065
  3. LEUCOVORIN CALCIUM [Suspect]
     Active Substance: LEUCOVORIN CALCIUM
     Dosage: 3 CYCLES
     Route: 065
  4. OXALIPLATIN [Suspect]
     Active Substance: OXALIPLATIN
     Indication: Colorectal cancer
     Dosage: 12 CYCLES
     Route: 065
  5. OXALIPLATIN [Suspect]
     Active Substance: OXALIPLATIN
     Route: 065
  6. FLUOROURACIL [Suspect]
     Active Substance: FLUOROURACIL
     Indication: Colorectal cancer
     Dosage: 12 CYCLES
     Route: 065
  7. FLUOROURACIL [Suspect]
     Active Substance: FLUOROURACIL
     Dosage: 06 CYCLES
     Route: 065
  8. FLUOROURACIL [Suspect]
     Active Substance: FLUOROURACIL
     Dosage: 03 CYCLES
     Route: 065
  9. IRINOTECAN [Concomitant]
     Active Substance: IRINOTECAN
     Indication: Colorectal cancer
     Dosage: 6 CYCLES
     Route: 065
  10. IRINOTECAN [Concomitant]
     Active Substance: IRINOTECAN
     Dosage: 3 CYCLES
     Route: 065
  11. AVASTIN [Concomitant]
     Active Substance: BEVACIZUMAB
     Indication: Colorectal cancer
     Dosage: 6 CYCLES
     Route: 065
  12. ERBITUX [Concomitant]
     Active Substance: CETUXIMAB
     Indication: Colorectal cancer
     Dosage: 3 CYCLES
     Route: 065

REACTIONS (2)
  - Abdominal compartment syndrome [Recovered/Resolved]
  - Pneumothorax [Recovered/Resolved]
